FAERS Safety Report 7425078-2 (Version None)
Quarter: 2011Q2

REPORT INFORMATION
  Report Type: 
  Country: None (occurrence: None)
  Receive Date: 20110420
  Receipt Date: 20110407
  Transmission Date: 20111010
  Serious: Yes (Hospitalization)
  Sender: FDA-Public Use
  Company Number: US-BIOGENIDEC-2011BI011526

PATIENT
  Age: 68 Year
  Sex: Male

DRUGS (1)
  1. TYSABRI [Suspect]
     Indication: MULTIPLE SCLEROSIS
     Route: 042
     Dates: start: 20070523, end: 20110406

REACTIONS (8)
  - POST PROCEDURAL INFECTION [None]
  - URINARY TRACT INFECTION [None]
  - APPENDICECTOMY [None]
  - CHOLECYSTECTOMY [None]
  - LEUKOCYTOSIS [None]
  - CLOSTRIDIAL INFECTION [None]
  - PNEUMONIA [None]
  - DEHYDRATION [None]
